FAERS Safety Report 11451466 (Version 1)
Quarter: 2015Q3

REPORT INFORMATION
  Report Type: Spontaneous
  Country: DE (occurrence: DE)
  Receive Date: 20150903
  Receipt Date: 20150903
  Transmission Date: 20151125
  Serious: Yes (Life-Threatening)
  Sender: FDA-Public Use
  Company Number: DE-SUN PHARMACEUTICAL INDUSTRIES LTD-2015RR-102411

PATIENT

DRUGS (15)
  1. 5-FU [Suspect]
     Active Substance: FLUOROURACIL
     Indication: PRODUCT USED FOR UNKNOWN INDICATION
     Dosage: 5 CYCLES FOLFOXIRI
     Route: 065
     Dates: start: 200907, end: 200910
  2. 5-FU [Suspect]
     Active Substance: FLUOROURACIL
     Dosage: 4 CYCLES MAINTENANCE THERAPY 5-FU/LEUCOVORIN (50% OF THE DOSE)
     Route: 065
     Dates: start: 201410, end: 201412
  3. LEUCOVORIN. [Suspect]
     Active Substance: LEUCOVORIN
     Dosage: 6 CYCLES OF MAINTENANCE THERAPY 5-FU/LEUCOVORIN (50% OF THE DOSE)
     Route: 065
     Dates: start: 201502, end: 201503
  4. 5-FU [Suspect]
     Active Substance: FLUOROURACIL
     Dosage: 6 CYCLES MAINTENANCE THERAPY 5-FU/LEUCOVORIN (75% OF THE DOSE)
     Route: 065
     Dates: start: 201502, end: 201503
  5. LEUCOVORIN. [Suspect]
     Active Substance: LEUCOVORIN
     Dosage: 9-10 CYCLES OF MAINTENANCE THERAPY 5-FU/LEUCOVORIN (50% OF THE DOSE)
     Route: 065
     Dates: start: 201505, end: 201506
  6. 5-FU [Suspect]
     Active Substance: FLUOROURACIL
     Dosage: 5 CYCLES MAINTENANCE THERAPY 5-FU/LEUCOVORIN (50% OF THE DOSE)
     Route: 065
     Dates: start: 20150114
  7. AVASTIN [Suspect]
     Active Substance: BEVACIZUMAB
     Indication: PRODUCT USED FOR UNKNOWN INDICATION
     Dosage: 12 CYCLES FOLFOX IN COMBINATION WITH AVASTIN
     Route: 065
     Dates: end: 201408
  8. OXALIPLATIN. [Suspect]
     Active Substance: OXALIPLATIN
     Indication: PRODUCT USED FOR UNKNOWN INDICATION
     Dosage: 5 CYCLES FOLFOXIRI
     Route: 065
     Dates: start: 200907, end: 200910
  9. FOLFOX [Suspect]
     Active Substance: FLUOROURACIL\LEUCOVORIN CALCIUM\OXALIPLATIN
     Indication: PRODUCT USED FOR UNKNOWN INDICATION
     Dosage: 2 CYCLES FOLFOX
     Route: 065
     Dates: start: 2010, end: 201010
  10. LEUCOVORIN. [Suspect]
     Active Substance: LEUCOVORIN
     Dosage: 5 CYCLES OF MAINTENANCE THERAPY 5-FU/LEUCOVORIN (50% OF THE DOSE)
     Route: 065
     Dates: start: 201501
  11. 5-FU [Suspect]
     Active Substance: FLUOROURACIL
     Dosage: 9-10 CYCLES MAINTENANCE THERAPY 5FU/LEUCOVORIN (50% OF DOSIS)
     Route: 065
     Dates: start: 201505, end: 201506
  12. FOLSAEURE [Suspect]
     Active Substance: FOLIC ACID
     Indication: PRODUCT USED FOR UNKNOWN INDICATION
     Dosage: 5 CYCLES FOLFOXIRI
     Route: 065
     Dates: start: 200907, end: 200910
  13. IRINOTECAN [Suspect]
     Active Substance: IRINOTECAN
     Indication: PRODUCT USED FOR UNKNOWN INDICATION
     Dosage: UNK
     Route: 065
     Dates: start: 200907, end: 200910
  14. FOLFOX [Suspect]
     Active Substance: FLUOROURACIL\LEUCOVORIN CALCIUM\OXALIPLATIN
     Indication: PRODUCT USED FOR UNKNOWN INDICATION
     Dosage: 12 CYCLES FOLFOX IN COMBINATION WITH AVASTIN
     Route: 065
     Dates: start: 201402, end: 201408
  15. LEUCOVORIN. [Suspect]
     Active Substance: LEUCOVORIN
     Indication: PRODUCT USED FOR UNKNOWN INDICATION
     Dosage: 4 CYCLES OF MAINTENANCE THERAPY 5-FU/LEUCOVORIN (50% OF THE DOSE)
     Route: 065
     Dates: start: 201410, end: 201412

REACTIONS (1)
  - Acute lymphocytic leukaemia [Not Recovered/Not Resolved]

NARRATIVE: CASE EVENT DATE: 201507
